FAERS Safety Report 5247809-2 (Version None)
Quarter: 2007Q1

REPORT INFORMATION
  Report Type: 
  Country: None (occurrence: None)
  Receive Date: 20070227
  Receipt Date: 20070220
  Transmission Date: 20070707
  Serious: Yes (Other)
  Sender: FDA-Public Use
  Company Number: SE-JNJFOC-20070205025

PATIENT
  Age: 54 Year
  Sex: Male

DRUGS (4)
  1. REMICADE [Suspect]
     Indication: COLITIS ULCERATIVE
     Route: 042
  2. SULFASALAZINE [Concomitant]
     Route: 065
  3. PRED-CLYSMA [Concomitant]
     Route: 054
  4. AZATHIPRINE [Concomitant]
     Route: 065

REACTIONS (3)
  - DIABETES MELLITUS [None]
  - SKIN DISORDER [None]
  - SKIN FISSURES [None]
